FAERS Safety Report 16098899 (Version 2)
Quarter: 2019Q4

REPORT INFORMATION
  Report Type: Spontaneous
  Country: US (occurrence: US)
  Receive Date: 20190321
  Receipt Date: 20191210
  Transmission Date: 20200122
  Serious: Yes (Hospitalization, Other)
  Sender: FDA-Public Use
  Company Number: US-PFIZER INC-2019118635

PATIENT
  Age: 60 Year
  Sex: Female

DRUGS (1)
  1. XELJANZ XR [Suspect]
     Active Substance: TOFACITINIB CITRATE
     Dosage: 11 MG, 1X/DAY
     Route: 048
     Dates: start: 20190115

REACTIONS (6)
  - Asthma [Unknown]
  - Pulmonary oedema [Unknown]
  - Vomiting [Unknown]
  - Pain [Unknown]
  - Pyrexia [Unknown]
  - Respiratory tract congestion [Unknown]
